FAERS Safety Report 8951918 (Version 1)
Quarter: 2012Q4

REPORT INFORMATION
  Report Type: 
  Country: US (occurrence: US)
  Receive Date: 20121204
  Receipt Date: 20121204
  Transmission Date: 20130627
  Serious: No
  Sender: FDA-Public Use
  Company Number: US-AMGEN-USASP2012064542

PATIENT
  Age: 50 Year
  Sex: Female
  Weight: 112.2 kg

DRUGS (9)
  1. ENBREL [Suspect]
     Indication: RHEUMATOID ARTHRITIS
     Dosage: 50 mg, qwk
     Route: 058
     Dates: start: 20111101, end: 20120326
  2. VENLAFAXINE [Concomitant]
     Dosage: 75 mg, tid
     Route: 048
  3. METAPRO [Concomitant]
     Dosage: 25 mg, bid
     Route: 048
  4. METHOTREXATE [Concomitant]
     Dosage: 2.5 mg, 8 tablets by mouth once week
     Route: 048
     Dates: start: 20111017
  5. MOBIC [Concomitant]
     Dosage: 7.5 mg, 2 tablets qd
     Route: 048
     Dates: start: 20111013
  6. PENNSAID [Concomitant]
     Dosage: UNK UNK, transdermal solution bid
     Route: 061
     Dates: start: 20120312
  7. HYDROCODONE [Concomitant]
     Dosage: 7.5-750 mg, one tablet every four hours as needed
  8. CYMBALTA [Concomitant]
     Dosage: 30 mg, tid
     Route: 048
     Dates: end: 20120312
  9. TRIAMCINOLONE                      /00031902/ [Concomitant]
     Dosage: 40 mg, UNK
     Dates: start: 20120312

REACTIONS (5)
  - Back pain [Not Recovered/Not Resolved]
  - Arthralgia [Not Recovered/Not Resolved]
  - Joint swelling [Not Recovered/Not Resolved]
  - Musculoskeletal pain [Unknown]
  - Rotator cuff syndrome [Unknown]
